FAERS Safety Report 17768010 (Version 1)
Quarter: 2020Q2

REPORT INFORMATION
  Report Type: Spontaneous
  Country: US (occurrence: US)
  Receive Date: 20200511
  Receipt Date: 20200511
  Transmission Date: 20200714
  Serious: No
  Sender: FDA-Public Use
  Company Number: US-UPSHER-SMITH LABORATORIES, LLC-2019USL00370

PATIENT
  Age: 35 Year
  Sex: Male
  Weight: 106.58 kg

DRUGS (6)
  1. EFFEXOR [Concomitant]
     Active Substance: VENLAFAXINE HYDROCHLORIDE
  2. OMEPRAZOLE. [Concomitant]
     Active Substance: OMEPRAZOLE
  3. IMITREX [Concomitant]
     Active Substance: SUMATRIPTAN SUCCINATE
     Dosage: UNK, AS NEEDED
  4. EPIPEN [Concomitant]
     Active Substance: EPINEPHRINE
     Dosage: UNK, AS NEEDED
  5. THIAMINE HCL [Concomitant]
     Active Substance: THIAMINE HYDROCHLORIDE
  6. KLOR-CON [Suspect]
     Active Substance: POTASSIUM CHLORIDE
     Indication: BLOOD POTASSIUM DECREASED
     Dosage: 20 MEQ, 1X/DAY
     Route: 048
     Dates: start: 20190501

REACTIONS (2)
  - Product residue present [Not Recovered/Not Resolved]
  - Drug ineffective [Not Recovered/Not Resolved]

NARRATIVE: CASE EVENT DATE: 201905
